FAERS Safety Report 25997991 (Version 3)
Quarter: 2025Q4

REPORT INFORMATION
  Report Type: Report from Study
  Country: US (occurrence: US)
  Receive Date: 20251105
  Receipt Date: 20251223
  Transmission Date: 20260118
  Serious: Yes (Other)
  Sender: CELLTRION
  Company Number: US-CELLTRION INC.-2025US020678

PATIENT

DRUGS (1)
  1. INFLIXIMAB-DYYB [Suspect]
     Active Substance: INFLIXIMAB-DYYB
     Indication: Product used for unknown indication
     Dosage: 120 MG/ML PEN KIT, EVERY 2 WEEKS
     Route: 058

REACTIONS (3)
  - Eczema [Unknown]
  - Rhinorrhoea [Unknown]
  - Eye pruritus [Unknown]
